FAERS Safety Report 5502891-X (Version None)
Quarter: 2007Q4

REPORT INFORMATION
  Report Type: 
  Country: None (occurrence: None)
  Receive Date: 20071031
  Receipt Date: 20071029
  Transmission Date: 20080405
  Serious: Yes (Life-Threatening)
  Sender: FDA-Public Use
  Company Number: B0492133A

PATIENT
  Age: 69 Year
  Sex: Female

DRUGS (2)
  1. AQUAFRESH FRESH N MINTY TOOTHPASTE [Suspect]
     Indication: DRUG USE FOR UNKNOWN INDICATION
  2. COLGATE [Concomitant]

REACTIONS (5)
  - ANAPHYLACTIC REACTION [None]
  - ORAL DISCOMFORT [None]
  - PHARMACEUTICAL PRODUCT COMPLAINT [None]
  - SWELLING FACE [None]
  - SWOLLEN TONGUE [None]
